FAERS Safety Report 13871421 (Version 1)
Quarter: 2017Q3

REPORT INFORMATION
  Report Type: Spontaneous
  Country: US (occurrence: US)
  Receive Date: 20170816
  Receipt Date: 20170816
  Transmission Date: 20171127
  Serious: No
  Sender: FDA-Public Use
  Company Number: US-ALLERGAN-1670318US

PATIENT
  Age: 84 Year
  Sex: Female

DRUGS (1)
  1. CELEXA [Suspect]
     Active Substance: CITALOPRAM HYDROBROMIDE
     Indication: DEPRESSION
     Dosage: 20 MG, BID, WEANED TO 20 MG QD
     Route: 048
     Dates: start: 20160829

REACTIONS (4)
  - Altered state of consciousness [Recovering/Resolving]
  - Drug dose omission [Unknown]
  - Incorrect dose administered [Unknown]
  - Fatigue [Recovering/Resolving]

NARRATIVE: CASE EVENT DATE: 201609
